FAERS Safety Report 20976620 (Version 2)
Quarter: 2022Q4

REPORT INFORMATION
  Report Type: Spontaneous
  Country: US (occurrence: US)
  Receive Date: 20220617
  Receipt Date: 20221027
  Transmission Date: 20230112
  Serious: Yes (Hospitalization, Other)
  Sender: FDA-Public Use
  Company Number: US-PFIZER INC-202200829520

PATIENT
  Age: 18 Year
  Sex: Male

DRUGS (5)
  1. METHYLPREDNISOLONE [Suspect]
     Active Substance: METHYLPREDNISOLONE
     Indication: Lymphocytic leukaemia
     Dosage: UNK UNK, CYCLIC
     Route: 048
  2. VINCRISTINE SULFATE [Suspect]
     Active Substance: VINCRISTINE SULFATE
     Indication: Lymphocytic leukaemia
     Dosage: UNK UNK, CYCLIC
     Route: 048
  3. DAUNORUBICIN [Suspect]
     Active Substance: DAUNORUBICIN
     Indication: Lymphocytic leukaemia
     Dosage: UNK UNK, CYCLIC (1 DOSE)
  4. PEGASPARGASE [Concomitant]
     Active Substance: PEGASPARGASE
     Indication: Lymphocytic leukaemia
     Dosage: UNK UNK, CYCLIC
     Route: 048
  5. IMATINIB [Concomitant]
     Active Substance: IMATINIB
     Indication: Trisomy 21
     Dosage: UNK, DAILY
     Route: 048

REACTIONS (1)
  - Pneumonia fungal [Recovered/Resolved]
